FAERS Safety Report 21572897 (Version 1)
Quarter: 2022Q4

REPORT INFORMATION
  Report Type: Report from Study
  Country: PR (occurrence: PR)
  Receive Date: 20221109
  Receipt Date: 20221109
  Transmission Date: 20230113
  Serious: No
  Sender: FDA-Public Use
  Company Number: PR-ABBVIE-22K-131-4409182-00

PATIENT
  Age: 52 Year
  Sex: Female
  Weight: 55 kg

DRUGS (5)
  1. HUMIRA [Suspect]
     Active Substance: ADALIMUMAB
     Indication: Rheumatoid arthritis
     Dosage: 40MG/0.4ML, FORM STRENGTH: 40 MG
     Route: 058
  2. HUMIRA [Suspect]
     Active Substance: ADALIMUMAB
  3. COVID-19 vaccine mRNA (mRNA 1273) [Concomitant]
     Indication: COVID-19 immunisation
     Dosage: TIME INTERVAL: 1 TOTAL: 1ST DOSE?MRNA-1273
     Route: 030
     Dates: start: 20210325, end: 20210325
  4. COVID-19 vaccine mRNA (mRNA 1273) [Concomitant]
     Indication: COVID-19 immunisation
     Dosage: TIME INTERVAL: 1 TOTAL: 2ND DOSE?MRNA-1273
     Route: 030
     Dates: start: 20210422, end: 20210422
  5. COVID-19 vaccine mRNA (mRNA 1273) [Concomitant]
     Indication: COVID-19 immunisation
     Dosage: TIME INTERVAL: 1 TOTAL: BOOSTER DOSE?MRNA-1273
     Route: 030
     Dates: start: 20220115, end: 20220115

REACTIONS (6)
  - Intervertebral disc protrusion [Not Recovered/Not Resolved]
  - Pain in extremity [Not Recovered/Not Resolved]
  - Neck pain [Not Recovered/Not Resolved]
  - Arthralgia [Not Recovered/Not Resolved]
  - Muscle spasms [Not Recovered/Not Resolved]
  - Peripheral swelling [Recovering/Resolving]

NARRATIVE: CASE EVENT DATE: 20220401
